FAERS Safety Report 7571343-8 (Version None)
Quarter: 2011Q2

REPORT INFORMATION
  Report Type: 
  Country: None (occurrence: None)
  Receive Date: 20110624
  Receipt Date: 20110616
  Transmission Date: 20111010
  Serious: Yes (Hospitalization)
  Sender: FDA-Public Use
  Company Number: B0726494A

PATIENT
  Sex: Female

DRUGS (13)
  1. AMLODIPINE [Concomitant]
  2. ONDANSERTRON HYDROCHLORIDE [Suspect]
     Route: 065
     Dates: start: 20110422, end: 20110422
  3. CALCIUM + COLECALCIFEROL [Concomitant]
     Dosage: 1000MG UNKNOWN
     Route: 048
  4. LASIX [Concomitant]
     Dosage: 40MG UNKNOWN
     Route: 048
  5. FERROUS SULFATE + FOLIC ACID [Concomitant]
  6. FOLIC ACID [Concomitant]
     Route: 048
  7. SODIUM BICARBONATE [Suspect]
     Dosage: 1UNIT CYCLIC
     Route: 048
     Dates: start: 20110422, end: 20110422
  8. RAMIPRIL [Concomitant]
     Dosage: 10MG UNKNOWN
     Route: 065
  9. DETENSIEL [Concomitant]
     Dosage: 10MG UNKNOWN
     Route: 048
  10. CYCLOPHOSPHAMIDE [Suspect]
     Indication: SYSTEMIC LUPUS ERYTHEMATOSUS
     Route: 042
     Dates: start: 20110422, end: 20110422
  11. CORTICOIDS [Concomitant]
     Route: 065
     Dates: start: 20110407, end: 20110407
  12. MESNA [Suspect]
     Route: 065
     Dates: start: 20110422, end: 20110422
  13. LANSOPRAZOLE [Concomitant]

REACTIONS (3)
  - ERYTHEMA [None]
  - PYREXIA [None]
  - ARTHRALGIA [None]
